FAERS Safety Report 11124836 (Version 1)
Quarter: 2015Q2

REPORT INFORMATION
  Report Type: Spontaneous
  Country: US (occurrence: US)
  Receive Date: 20150520
  Receipt Date: 20150520
  Transmission Date: 20150821
  Serious: No
  Sender: FDA-Public Use
  Company Number: US-BAYER-2015-217020

PATIENT
  Age: 65 Year
  Sex: Female

DRUGS (1)
  1. ALEVE [Suspect]
     Active Substance: NAPROXEN SODIUM
     Dosage: 2 DF, TID
     Route: 048

REACTIONS (3)
  - Medication error [None]
  - Off label use [None]
  - Ecchymosis [Not Recovered/Not Resolved]
